FAERS Safety Report 11839503 (Version 1)
Quarter: 2015Q4

REPORT INFORMATION
  Report Type: Spontaneous
  Country: JP (occurrence: JP)
  Receive Date: 20151216
  Receipt Date: 20151216
  Transmission Date: 20160305
  Serious: Yes (Other)
  Sender: FDA-Public Use
  Company Number: PHJP2015JP022367

PATIENT
  Age: 45 Year
  Sex: Male

DRUGS (2)
  1. SANDIMMUN INFUSION [Suspect]
     Active Substance: CYCLOSPORINE
     Indication: TRANSPLANT
     Dosage: UNK
     Route: 041
  2. NEORAL [Suspect]
     Active Substance: CYCLOSPORINE
     Indication: TRANSPLANT
     Dosage: 170 MG, BID
     Route: 048

REACTIONS (2)
  - Graft versus host disease [Unknown]
  - Graft versus host disease [Recovered/Resolved]
